FAERS Safety Report 15057055 (Version 1)
Quarter: 2018Q2

REPORT INFORMATION
  Report Type: Spontaneous
  Country: US (occurrence: US)
  Receive Date: 20180604
  Receipt Date: 20180604
  Transmission Date: 20180711
  Serious: Yes (Other)
  Sender: FDA-Public Use
  Company Number: None

PATIENT
  Age: 54 Year
  Sex: Female
  Weight: 139.5 kg

DRUGS (15)
  1. FLUCANOZOLE [Concomitant]
  2. XELJANZ [Suspect]
     Active Substance: TOFACITINIB CITRATE
     Indication: PSORIATIC ARTHROPATHY
     Dosage: ?          QUANTITY:1 DF DOSAGE FORM;?
     Route: 048
     Dates: start: 20180601, end: 20180602
  3. SPIRIVA [Concomitant]
     Active Substance: TIOTROPIUM BROMIDE MONOHYDRATE
  4. PREVACID [Concomitant]
     Active Substance: LANSOPRAZOLE
  5. VITAMIN C [Concomitant]
     Active Substance: ASCORBIC ACID
  6. FISH OIL [Concomitant]
     Active Substance: FISH OIL
  7. METHOTREXATE. [Concomitant]
     Active Substance: METHOTREXATE
  8. ALDACTONE [Concomitant]
     Active Substance: SPIRONOLACTONE
  9. ADVAIR HFA [Concomitant]
     Active Substance: FLUTICASONE PROPIONATE\SALMETEROL XINAFOATE
  10. MULTIVITAMIN [Concomitant]
     Active Substance: VITAMINS
  11. VITAMIN D3 [Concomitant]
     Active Substance: CHOLECALCIFEROL
  12. VITAMIN B [Concomitant]
     Active Substance: VITAMIN B
  13. LISINOPRIL. [Concomitant]
     Active Substance: LISINOPRIL
  14. RHINOCORT [Concomitant]
     Active Substance: BUDESONIDE
  15. FENTANYL TRANSDERMAL SYSTEM [Concomitant]
     Active Substance: FENTANYL

REACTIONS (3)
  - Chest pain [None]
  - Arrhythmia [None]
  - Cardiac flutter [None]

NARRATIVE: CASE EVENT DATE: 20180602
